FAERS Safety Report 6863031-8 (Version None)
Quarter: 2010Q3

REPORT INFORMATION
  Report Type: 
  Country: None (occurrence: None)
  Receive Date: 20100721
  Receipt Date: 20100713
  Transmission Date: 20110219
  Serious: Yes (Hospitalization)
  Sender: FDA-Public Use
  Company Number: AU-SANOFI-AVENTIS-2010SA040382

PATIENT
  Age: 60 Year
  Sex: Female
  Weight: 67 kg

DRUGS (2)
  1. CLEXANE [Suspect]
     Indication: PROPHYLAXIS
     Route: 058
  2. CLEXANE [Suspect]
     Route: 058

REACTIONS (3)
  - HAEMATOMA [None]
  - INFECTION [None]
  - INTESTINAL HAEMORRHAGE [None]
